FAERS Safety Report 5144882-7 (Version None)
Quarter: 2006Q4

REPORT INFORMATION
  Report Type: 
  Country: None (occurrence: None)
  Receive Date: 20061107
  Receipt Date: 20061030
  Transmission Date: 20070319
  Serious: Yes (Other)
  Sender: FDA-Public Use
  Company Number: US-PURDUE-USA_2006_0025537

PATIENT
  Sex: Female

DRUGS (5)
  1. OXYCONTIN [Suspect]
     Indication: BACK PAIN
     Dosage: 40 MG, QID
     Route: 048
  2. LISINOPRIL [Concomitant]
     Dosage: UNK, UNK
  3. NEXIUM [Concomitant]
     Dosage: UNK, UNK
  4. EFFEXOR [Concomitant]
     Dosage: UNK, UNK
  5. ESTRATEST [Concomitant]
     Dosage: UNK, UNK

REACTIONS (1)
  - HYPOACUSIS [None]
